FAERS Safety Report 20658536 (Version 1)
Quarter: 2022Q1

REPORT INFORMATION
  Report Type: Spontaneous
  Country: US (occurrence: None)
  Receive Date: 20220330
  Receipt Date: 20220330
  Transmission Date: 20220423
  Serious: Yes (Hospitalization)
  Sender: FDA-Public Use
  Company Number: None

PATIENT
  Age: 53 Year
  Sex: Female
  Weight: 101.25 kg

DRUGS (8)
  1. .DELTA.8-TETRAHYDROCANNABINOL\HERBALS [Suspect]
     Active Substance: .DELTA.8-TETRAHYDROCANNABINOL\HERBALS
     Indication: Sleep disorder
     Dosage: OTHER QUANTITY : 4 25 MG GUMMY?
     Route: 048
     Dates: start: 20220323, end: 20220323
  2. PEPCID [Concomitant]
     Active Substance: FAMOTIDINE
  3. VITAMIN C [Concomitant]
     Active Substance: ASCORBIC ACID
  4. VITAMIN B [Concomitant]
     Active Substance: VITAMIN B
  5. VITAMIN D NOS [Concomitant]
     Active Substance: VITAMIN D NOS
  6. Magnesium osteo biflex [Concomitant]
  7. HERBALS\TURMERIC [Concomitant]
     Active Substance: HERBALS\TURMERIC
  8. HERBALS [Concomitant]
     Active Substance: HERBALS

REACTIONS (7)
  - Cerebrovascular accident [None]
  - Gait disturbance [None]
  - Tunnel vision [None]
  - Near death experience [None]
  - Consciousness fluctuating [None]
  - Oxygen saturation decreased [None]
  - Thrombosis [None]

NARRATIVE: CASE EVENT DATE: 20220323
